FAERS Safety Report 23546014 (Version 5)
Quarter: 2025Q1

REPORT INFORMATION
  Report Type: Report from Study
  Country: CH (occurrence: DE)
  Receive Date: 20240220
  Receipt Date: 20250307
  Transmission Date: 20250409
  Serious: Yes (Life-Threatening)
  Sender: OPKO HEALTH
  Company Number: CH-OPKO PHARMACEUTICALS, LLC.-2024OPK00036

PATIENT
  Sex: Male
  Weight: 143 kg

DRUGS (13)
  1. RAYALDEE [Suspect]
     Active Substance: CALCIFEDIOL
     Indication: Chronic kidney disease
     Dosage: 30 MCG, QD
     Dates: start: 20221019
  2. RAYALDEE [Suspect]
     Active Substance: CALCIFEDIOL
     Indication: Hyperparathyroidism secondary
  3. RAYALDEE [Suspect]
     Active Substance: CALCIFEDIOL
     Indication: Vitamin D deficiency
  4. ATORVASTATIN [Concomitant]
     Active Substance: ATORVASTATIN
     Indication: Coronary artery disease
     Dosage: 80 MG, QD
     Route: 048
     Dates: start: 2010
  5. CANDESARTAN [Concomitant]
     Active Substance: CANDESARTAN
     Indication: Chronic kidney disease
     Dosage: 4 MG, QD
     Route: 048
  6. LEVEMIR [Concomitant]
     Active Substance: INSULIN DETEMIR
     Indication: Type 2 diabetes mellitus
     Dosage: 20 INTERNATIONAL UNIT, QD
     Route: 058
     Dates: start: 2006
  7. INSULIN LISPRO [Concomitant]
     Active Substance: INSULIN LISPRO
     Indication: Type 2 diabetes mellitus
     Route: 058
     Dates: start: 2006
  8. CARVEDILOL [Concomitant]
     Active Substance: CARVEDILOL
     Indication: Hypertension
     Dosage: 12.5 MG, BID
     Route: 048
     Dates: start: 2008
  9. CORDAREX [Concomitant]
     Active Substance: AMIODARONE
     Indication: Coronary artery disease
     Dosage: 100 MG, QD
     Route: 048
     Dates: start: 2011
  10. EZETIMIBE [Concomitant]
     Active Substance: EZETIMIBE
     Indication: Coronary artery disease
     Dosage: 10 MG, QD
     Route: 048
     Dates: start: 2011
  11. APIXABAN [Concomitant]
     Active Substance: APIXABAN
     Dates: start: 20240418
  12. TORSEMIDE [Concomitant]
     Active Substance: TORSEMIDE
     Dates: start: 20240416
  13. NATRIUM HYDROGENCARBONATE [Concomitant]
     Dates: start: 20240416

REACTIONS (1)
  - Hyperkalaemia [Recovered/Resolved]

NARRATIVE: CASE EVENT DATE: 20231220
